FAERS Safety Report 25614135 (Version 2)
Quarter: 2025Q3

REPORT INFORMATION
  Report Type: Report from Study
  Country: US (occurrence: US)
  Receive Date: 20250728
  Receipt Date: 20250829
  Transmission Date: 20251020
  Serious: Yes (Other)
  Sender: MALLINCKRODT
  Company Number: US-MALLINCKRODT-MNK202504458

PATIENT
  Age: 51 Year
  Sex: Female

DRUGS (2)
  1. CORTICOTROPIN [Suspect]
     Active Substance: CORTICOTROPIN
     Indication: Iridocyclitis
  2. HUMIRA [Concomitant]
     Active Substance: ADALIMUMAB

REACTIONS (2)
  - Iridocyclitis [Unknown]
  - Loss of consciousness [Unknown]

NARRATIVE: CASE EVENT DATE: 20250714
